FAERS Safety Report 10873955 (Version 1)
Quarter: 2015Q1

REPORT INFORMATION
  Report Type: Spontaneous
  Country: US (occurrence: None)
  Receive Date: 20150224
  Receipt Date: 20150224
  Transmission Date: 20150721
  Serious: Yes (Hospitalization)
  Sender: FDA-Public Use
  Company Number: ABR_02057_2015

PATIENT
  Age: 43 Year
  Sex: Female

DRUGS (2)
  1. COCAINE [Suspect]
     Active Substance: COCAINE
     Dosage: DF
  2. AMPHETAMINE [Suspect]
     Active Substance: AMPHETAMINE
     Dosage: DF

REACTIONS (7)
  - Colitis ischaemic [None]
  - Drug abuse [None]
  - Abdominal pain lower [None]
  - Drug screen positive [None]
  - Lower gastrointestinal haemorrhage [None]
  - Diarrhoea haemorrhagic [None]
  - Intestinal ischaemia [None]
